FAERS Safety Report 12525274 (Version 1)
Quarter: 2016Q3

REPORT INFORMATION
  Report Type: Report from Study
  Country: US (occurrence: US)
  Receive Date: 20160704
  Receipt Date: 20160704
  Transmission Date: 20161109
  Serious: Yes (Other)
  Sender: FDA-Public Use
  Company Number: US-AMGEN-USASP2016079430

PATIENT
  Age: 40 Year
  Sex: Female
  Weight: 83.7 kg

DRUGS (5)
  1. RENVELA [Concomitant]
     Active Substance: SEVELAMER CARBONATE
     Indication: HYPERPARATHYROIDISM SECONDARY
     Dosage: 2.4 G, TID
     Dates: start: 20150324
  2. RENVELA [Concomitant]
     Active Substance: SEVELAMER CARBONATE
     Indication: HYPERPHOSPHATAEMIA
  3. CINACALCET HCL [Suspect]
     Active Substance: CINACALCET HYDROCHLORIDE
     Indication: HYPERPARATHYROIDISM SECONDARY
     Dosage: 30 MG, UNK
     Route: 048
     Dates: start: 20150429
  4. CALCITROL [Concomitant]
     Active Substance: CALCITRIOL
     Indication: HYPERPARATHYROIDISM SECONDARY
     Dosage: 0.25 MUG, QD
     Dates: start: 20150313
  5. VELPHORO [Concomitant]
     Active Substance: FERRIC OXYHYDROXIDE
     Route: 048

REACTIONS (5)
  - Drug intolerance [Unknown]
  - Drug ineffective [Unknown]
  - Nausea [Unknown]
  - Abdominal discomfort [Not Recovered/Not Resolved]
  - Diabetic gastroparesis [Unknown]

NARRATIVE: CASE EVENT DATE: 20150501
